FAERS Safety Report 15397200 (Version 1)
Quarter: 2018Q3

REPORT INFORMATION
  Report Type: Other
  Country: US (occurrence: US)
  Receive Date: 20180918
  Receipt Date: 20180918
  Transmission Date: 20181010
  Serious: No
  Sender: FDA-Public Use
  Company Number: US-LEADIANT BIOSCIENCES INC-2018STPI000443

PATIENT
  Sex: Female

DRUGS (13)
  1. SUMATRIPTAN. [Concomitant]
     Active Substance: SUMATRIPTAN
     Dosage: 100 MG, UNK
     Dates: start: 20180117
  2. APTIOM [Concomitant]
     Active Substance: ESLICARBAZEPINE ACETATE
     Dosage: 800 MG, UNK
     Dates: start: 20180117
  3. MATULANE [Concomitant]
     Active Substance: PROCARBAZINE HYDROCHLORIDE
     Dosage: 50 MG, UNK
     Dates: start: 20180117
  4. METHOCARBAMOL. [Concomitant]
     Active Substance: METHOCARBAMOL
     Dosage: 750 MG, UNK
     Dates: start: 20180117
  5. OXYCODONE [Concomitant]
     Active Substance: OXYCODONE
     Dosage: 5 MG, UNK
     Dates: start: 20180117
  6. MATULANE [Suspect]
     Active Substance: PROCARBAZINE HYDROCHLORIDE
     Indication: BRAIN NEOPLASM MALIGNANT
     Dosage: 100 MG, DAILY ON DAYS 8  T0 21 OF CYCLE
     Route: 048
     Dates: start: 20180208
  7. PROCHLORPERAZINE. [Concomitant]
     Active Substance: PROCHLORPERAZINE
     Dosage: 10 MG, UNK
     Dates: start: 20180117
  8. MICROGESTIN [Concomitant]
     Active Substance: ETHINYL ESTRADIOL\NORETHINDRONE ACETATE
     Dosage: UNK
     Dates: start: 20180117
  9. GLEOSTINE [Concomitant]
     Active Substance: LOMUSTINE
  10. DEXAMETHASON                       /00016001/ [Concomitant]
     Active Substance: DEXAMETHASONE
     Dosage: 4 UNK, UNK
     Dates: start: 20180117
  11. IBUPROFEN. [Concomitant]
     Active Substance: IBUPROFEN
     Dosage: 600 MG, UNK
     Dates: start: 20180117
  12. OMEPRAZOLE. [Concomitant]
     Active Substance: OMEPRAZOLE
     Dosage: 20 MG, UNK
     Dates: start: 20180117
  13. DOCUSATE SOD [Concomitant]
     Dosage: 100 MG, UNK
     Dates: start: 20180117

REACTIONS (1)
  - Infection [Not Recovered/Not Resolved]
